FAERS Safety Report 15451656 (Version 3)
Quarter: 2019Q2

REPORT INFORMATION
  Report Type: Spontaneous
  Country: CA (occurrence: CA)
  Receive Date: 20181001
  Receipt Date: 20190619
  Transmission Date: 20190711
  Serious: Yes (Life-Threatening, Hospitalization, Other)
  Sender: FDA-Public Use
  Company Number: CA-PFIZER INC-2018388106

PATIENT
  Age: 57 Year
  Sex: Female

DRUGS (4)
  1. HYDROXYCHLOROQUINE [Concomitant]
     Active Substance: HYDROXYCHLOROQUINE
     Indication: RHEUMATOID ARTHRITIS
     Dosage: 400 MG, DAILY
     Route: 048
     Dates: start: 201601, end: 201810
  2. XELJANZ [Suspect]
     Active Substance: TOFACITINIB CITRATE
     Indication: RHEUMATOID ARTHRITIS
     Dosage: 5 MG, 2X/DAY
     Route: 048
     Dates: start: 20180911, end: 201810
  3. SULFASALAZINE. [Concomitant]
     Active Substance: SULFASALAZINE
     Indication: RHEUMATOID ARTHRITIS
     Dosage: 1.5 G, 2X/DAY
     Route: 048
     Dates: start: 201611, end: 201810
  4. LEFLUNOMIDE. [Concomitant]
     Active Substance: LEFLUNOMIDE
     Indication: RHEUMATOID ARTHRITIS
     Dosage: 20 MG, DAILY
     Route: 048
     Dates: start: 201804, end: 201810

REACTIONS (12)
  - Complement factor C3 decreased [Unknown]
  - Cardiac failure [Recovered/Resolved with Sequelae]
  - Thrombocytopenia [Unknown]
  - Renal failure [Unknown]
  - Bacterial infection [Recovered/Resolved]
  - Skin lesion [Unknown]
  - Hepatitis acute [Recovered/Resolved]
  - Pulmonary embolism [Recovered/Resolved]
  - Peroneal nerve palsy [Unknown]
  - Multiple organ dysfunction syndrome [Recovered/Resolved]
  - Dyspnoea [Recovered/Resolved]
  - Chest discomfort [Unknown]

NARRATIVE: CASE EVENT DATE: 20180927
